FAERS Safety Report 15556170 (Version 1)
Quarter: 2018Q4

REPORT INFORMATION
  Report Type: Spontaneous
  Country: US (occurrence: US)
  Receive Date: 20181026
  Receipt Date: 20181026
  Transmission Date: 20190205
  Serious: No
  Sender: FDA-Public Use
  Company Number: US-ALLERGAN-1801207US

PATIENT
  Age: 87 Year
  Sex: Female

DRUGS (3)
  1. LATANOPROST. [Concomitant]
     Active Substance: LATANOPROST
     Dosage: UNK UNK, QHS
     Route: 047
  2. LEVOBUNOLOL [Concomitant]
     Active Substance: LEVOBUNOLOL
     Dosage: UNK UNK, QHS
     Route: 047
  3. ALPHAGAN P [Suspect]
     Active Substance: BRIMONIDINE TARTRATE
     Indication: GLAUCOMA
     Dosage: UNK UNK, BID
     Route: 047
     Dates: start: 2017

REACTIONS (2)
  - Product dose omission [Unknown]
  - Product container issue [Unknown]

NARRATIVE: CASE EVENT DATE: 201801
